FAERS Safety Report 8386921-6 (Version None)
Quarter: 2012Q2

REPORT INFORMATION
  Report Type: 
  Country: None (occurrence: None)
  Receive Date: 20120525
  Receipt Date: 20120518
  Transmission Date: 20120825
  Serious: Yes (Hospitalization)
  Sender: FDA-Public Use
  Company Number: IT-UCBSA-057635

PATIENT
  Age: 51 Year
  Sex: Female

DRUGS (1)
  1. NITROGLYCERIN [Suspect]
     Dosage: DAILY DOSE:5 MG
     Route: 062
     Dates: start: 20120214, end: 20120219

REACTIONS (2)
  - HEADACHE [None]
  - HYPERSENSITIVITY [None]
